FAERS Safety Report 5186468-4 (Version None)
Quarter: 2006Q4

REPORT INFORMATION
  Report Type: 
  Country: None (occurrence: None)
  Receive Date: 20061213
  Receipt Date: 20061129
  Transmission Date: 20070319
  Serious: Yes (Other)
  Sender: FDA-Public Use
  Company Number: 2006S1000282

PATIENT
  Age: 68 Year
  Sex: Female

DRUGS (21)
  1. ACITRETIN [Suspect]
     Indication: DRUG USE FOR UNKNOWN INDICATION
     Dosage: PO
  2. EZETROL (EZETIMIBE) [Suspect]
     Indication: DRUG USE FOR UNKNOWN INDICATION
  3. CYCLOSPORINE [Suspect]
     Indication: DRUG USE FOR UNKNOWN INDICATION
  4. AZATHIOPRINE [Suspect]
     Indication: DRUG USE FOR UNKNOWN INDICATION
  5. ARANESP [Suspect]
     Indication: DRUG USE FOR UNKNOWN INDICATION
     Dosage: 200 UG; QW; SC
     Route: 058
  6. ERYTHROMYCIN [Concomitant]
  7. KEFLEX /00145501/ [Concomitant]
  8. NORFLOXACIN [Concomitant]
  9. EPREX [Concomitant]
  10. ONE-ALPHA [Concomitant]
  11. RANITIDINE [Concomitant]
  12. WARFARIN SODIUM [Concomitant]
  13. LEVOTHYROXINE SODIUM [Concomitant]
  14. ALENDRONATE SODIUM [Concomitant]
  15. POTASSIUM ACETATE [Concomitant]
  16. METOPROLOL SUCCINATE [Concomitant]
  17. DILTIAZEM HCL [Concomitant]
  18. CALCIUM [Concomitant]
  19. LIPITOR /01326101/ [Concomitant]
  20. PREDNISONE [Concomitant]
  21. ASPIRIN [Concomitant]

REACTIONS (2)
  - APLASIA PURE RED CELL [None]
  - BONE MARROW FAILURE [None]
